FAERS Safety Report 14858108 (Version 1)
Quarter: 2018Q2

REPORT INFORMATION
  Report Type: Spontaneous
  Country: FR (occurrence: FR)
  Receive Date: 20180508
  Receipt Date: 20180508
  Transmission Date: 20180711
  Serious: Yes (Hospitalization)
  Sender: FDA-Public Use
  Company Number: FR-MERCK KGAA-2047351

PATIENT
  Age: 77 Year
  Sex: Female

DRUGS (1)
  1. NOVOTHYROX [Suspect]
     Active Substance: LEVOTHYROXINE SODIUM
     Indication: HYPOTHYROIDISM

REACTIONS (17)
  - Vomiting [None]
  - Decreased appetite [None]
  - Vertigo [Not Recovered/Not Resolved]
  - Nausea [Not Recovered/Not Resolved]
  - Blood thyroid stimulating hormone increased [Recovered/Resolved]
  - Fatigue [None]
  - Bedridden [None]
  - Stress [None]
  - Depression [None]
  - Social avoidant behaviour [None]
  - Myalgia [Not Recovered/Not Resolved]
  - Arthralgia [None]
  - Insomnia [None]
  - Pain [None]
  - Loss of personal independence in daily activities [None]
  - Asthenia [Not Recovered/Not Resolved]
  - Nightmare [None]

NARRATIVE: CASE EVENT DATE: 20170830
